FAERS Safety Report 9056129 (Version 1)
Quarter: 2013Q1

REPORT INFORMATION
  Report Type: Spontaneous
  Country: US (occurrence: US)
  Receive Date: 20130205
  Receipt Date: 20130205
  Transmission Date: 20140127
  Serious: No
  Sender: FDA-Public Use
  Company Number: US-B.I. PHARMACEUTICALS,INC./RIDGEFIELD-2013-BI-03203BP

PATIENT
  Sex: Male

DRUGS (6)
  1. PRADAXA [Suspect]
     Indication: ATRIAL FIBRILLATION
     Dosage: 300 MG
     Route: 048
     Dates: start: 2010
  2. SOTALOL [Concomitant]
     Route: 048
  3. LASIX [Concomitant]
     Route: 048
  4. ATORVASTATIN [Concomitant]
     Route: 048
  5. LOSARTAN [Concomitant]
     Route: 048
  6. AMLODIPINE [Concomitant]
     Route: 048

REACTIONS (4)
  - Inguinal hernia [Not Recovered/Not Resolved]
  - Groin infection [Recovered/Resolved]
  - Testicular pain [Recovered/Resolved]
  - Local swelling [Recovered/Resolved]
